FAERS Safety Report 11984538 (Version 2)
Quarter: 2016Q1

REPORT INFORMATION
  Report Type: Spontaneous
  Country: IL (occurrence: IL)
  Receive Date: 20160201
  Receipt Date: 20160223
  Transmission Date: 20160526
  Serious: Yes (Other)
  Sender: FDA-Public Use
  Company Number: IL-TEVA-628681ISR

PATIENT

DRUGS (1)
  1. FLUOROURACIL. [Suspect]
     Active Substance: FLUOROURACIL
     Indication: COLORECTAL CANCER
     Route: 042

REACTIONS (4)
  - Inflammation [Recovered/Resolved]
  - Pigmentation disorder [Recovered/Resolved]
  - Toxicity to various agents [Recovered/Resolved]
  - Skin reaction [Recovered/Resolved]
